FAERS Safety Report 18554380 (Version 1)
Quarter: 2020Q4

REPORT INFORMATION
  Report Type: Spontaneous
  Country: US (occurrence: US)
  Receive Date: 20201127
  Receipt Date: 20201127
  Transmission Date: 20210114
  Serious: Yes (Hospitalization, Other)
  Sender: FDA-Public Use
  Company Number: US-009507513-2011USA015413

PATIENT
  Age: 33 Year
  Sex: Female
  Weight: 81.6 kg

DRUGS (2)
  1. PRINIVIL [Suspect]
     Active Substance: LISINOPRIL
     Indication: HYPERTENSION
     Dosage: 10 MILLIGRAM, QD
     Route: 048
  2. PRINIVIL [Suspect]
     Active Substance: LISINOPRIL
     Indication: HYPERTENSION
     Dosage: 10 MILLIGRAM, QD
     Route: 048

REACTIONS (8)
  - Swelling face [Unknown]
  - Dyspnoea [Unknown]
  - Swollen tongue [Unknown]
  - Hypersensitivity [Unknown]
  - Asthenia [Unknown]
  - Eye swelling [Unknown]
  - Blood potassium decreased [Unknown]
  - Urticaria [Unknown]
